FAERS Safety Report 25524839 (Version 1)
Quarter: 2025Q3

REPORT INFORMATION
  Report Type: Spontaneous
  Country: IL (occurrence: IL)
  Receive Date: 20250707
  Receipt Date: 20250707
  Transmission Date: 20251020
  Serious: Yes (Hospitalization, Other)
  Sender: BRISTOL-MYERS SQUIBB COMPANY
  Company Number: IL-BRISTOL-MYERS SQUIBB COMPANY-2025-069000

PATIENT
  Age: 89 Year
  Sex: Male

DRUGS (12)
  1. ELIQUIS [Suspect]
     Active Substance: APIXABAN
     Indication: Product used for unknown indication
  2. ELIQUIS [Suspect]
     Active Substance: APIXABAN
     Route: 048
  3. ALPHAGAN P [Concomitant]
     Active Substance: BRIMONIDINE TARTRATE
     Indication: Product used for unknown indication
     Dosage: BOTH EYES, 1 DROP 1X1 PER DAY
  4. BROTIZOLAM [Concomitant]
     Active Substance: BROTIZOLAM
     Indication: Product used for unknown indication
     Route: 048
  5. CARBIDOPA\LEVODOPA [Concomitant]
     Active Substance: CARBIDOPA\LEVODOPA
     Indication: Product used for unknown indication
     Route: 048
  6. D VIT [COLECALCIFEROL] [Concomitant]
     Indication: Product used for unknown indication
     Dosage: 400IU (90)
     Route: 048
  7. ENSURE [Concomitant]
     Active Substance: AMINO ACIDS\DEXTROSE\ELECTROLYTES NOS\SOYBEAN OIL\VITAMINS
     Indication: Product used for unknown indication
     Dosage: VANILLA WITH FIBER 220 ML
     Route: 048
  8. BISACODYL [Concomitant]
     Active Substance: BISACODYL
     Indication: Product used for unknown indication
     Route: 048
  9. MIRO [MIRTAZAPINE] [Concomitant]
     Indication: Product used for unknown indication
     Route: 048
  10. OMEPRA [Concomitant]
     Indication: Product used for unknown indication
     Route: 048
  11. TAMSULOSIN HYDROCHLORIDE [Concomitant]
     Active Substance: TAMSULOSIN HYDROCHLORIDE
     Indication: Product used for unknown indication
     Route: 048
  12. TIMOLOL MALEATE [Concomitant]
     Active Substance: TIMOLOL MALEATE
     Indication: Product used for unknown indication
     Dosage: 0.5% 5ML, BOTH EYES 1 DROP

REACTIONS (5)
  - Diverticulum intestinal haemorrhagic [Unknown]
  - COVID-19 [Unknown]
  - Enterococcal infection [Unknown]
  - Acinetobacter infection [Unknown]
  - Respiratory distress [Unknown]
